FAERS Safety Report 18605188 (Version 1)
Quarter: 2020Q4

REPORT INFORMATION
  Report Type: Spontaneous
  Country: BE (occurrence: BE)
  Receive Date: 20201211
  Receipt Date: 20201211
  Transmission Date: 20210114
  Serious: Yes (Other)
  Sender: FDA-Public Use
  Company Number: BE-ELI_LILLY_AND_COMPANY-BE202012001491

PATIENT
  Age: 30 Year
  Sex: Female

DRUGS (3)
  1. ZYPADHERA [Suspect]
     Active Substance: OLANZAPINE PAMOATE
     Indication: SCHIZOAFFECTIVE DISORDER
     Dosage: 405 MG, 2/M
     Route: 065
  2. ZYPADHERA [Suspect]
     Active Substance: OLANZAPINE PAMOATE
     Indication: SCHIZOAFFECTIVE DISORDER
     Dosage: 405 MG, 2/M
     Route: 065
  3. ZYPADHERA [Suspect]
     Active Substance: OLANZAPINE PAMOATE
     Indication: SCHIZOAFFECTIVE DISORDER
     Dosage: 405 MG, 2/M
     Route: 065

REACTIONS (13)
  - Gait disturbance [Unknown]
  - Overdose [Unknown]
  - Pain in extremity [Unknown]
  - Reduced facial expression [Unknown]
  - Arthralgia [Unknown]
  - Weight increased [Unknown]
  - Hypoglycaemia [Unknown]
  - Urinary incontinence [Unknown]
  - Hypersomnia [Unknown]
  - Thirst [Unknown]
  - Tremor [Unknown]
  - Myalgia [Unknown]
  - Musculoskeletal stiffness [Unknown]
